FAERS Safety Report 5859701-0 (Version None)
Quarter: 2008Q3

REPORT INFORMATION
  Report Type: 
  Country: None (occurrence: None)
  Receive Date: 20080827
  Receipt Date: 20080825
  Transmission Date: 20090109
  Serious: Yes (Hospitalization)
  Sender: FDA-Public Use
  Company Number: TR-BRISTOL-MYERS SQUIBB COMPANY-14313605

PATIENT
  Age: 74 Year
  Sex: Male

DRUGS (3)
  1. WARFARIN SODIUM [Suspect]
     Indication: MITRAL VALVE REPLACEMENT
     Dosage: RECOMMENCED WITH 2.5MG/DY ON DAY17;
  2. MOXIFLOXACIN HCL [Interacting]
     Indication: PNEUMONIA
  3. HEPARIN [Concomitant]
     Indication: MITRAL VALVE REPLACEMENT

REACTIONS (4)
  - DRUG INTERACTION [None]
  - ECCHYMOSIS [None]
  - HAEMATURIA [None]
  - INTERNATIONAL NORMALISED RATIO INCREASED [None]
